FAERS Safety Report 5315148-7 (Version None)
Quarter: 2007Q2

REPORT INFORMATION
  Report Type: 
  Country: None (occurrence: None)
  Receive Date: 20070502
  Receipt Date: 20070420
  Transmission Date: 20071010
  Serious: Yes (Hospitalization, Other)
  Sender: FDA-Public Use
  Company Number: US-PFIZER INC-2006136228

PATIENT
  Sex: Female
  Weight: 54.4 kg

DRUGS (3)
  1. CELEBREX [Suspect]
     Indication: PAIN MANAGEMENT
     Route: 048
  2. VIOXX [Suspect]
     Indication: ARTHRITIS
     Route: 048
  3. VIOXX [Suspect]
     Indication: OSTEOARTHRITIS

REACTIONS (2)
  - DEPRESSION [None]
  - ISCHAEMIC STROKE [None]
